FAERS Safety Report 9643303 (Version 2)
Quarter: 2013Q4

REPORT INFORMATION
  Report Type: Spontaneous
  Country: DE (occurrence: DE)
  Receive Date: 20131024
  Receipt Date: 20131120
  Transmission Date: 20140711
  Serious: Yes (Hospitalization, Other)
  Sender: FDA-Public Use
  Company Number: DE-ELI_LILLY_AND_COMPANY-DE201310004104

PATIENT
  Sex: Male
  Weight: 67 kg

DRUGS (7)
  1. ZYPADHERA [Suspect]
     Indication: SCHIZOPHRENIA
     Dosage: 300 MG, 2/M
     Route: 030
  2. ZYPREXA [Suspect]
     Dosage: 5 MG, QD
     Route: 065
  3. CITALOPRAM [Concomitant]
     Dosage: 20 MG, QD
     Route: 048
  4. VALPROAT [Concomitant]
     Dosage: 600 MG, QD
     Route: 065
  5. DECENTAN                           /00023401/ [Concomitant]
     Dosage: UNK, QD
     Route: 065
  6. DECORTIN [Concomitant]
     Dosage: 20 MG, UNKNOWN
     Route: 048
  7. ERGENYL [Concomitant]
     Dosage: 900 MG, UNKNOWN
     Route: 048

REACTIONS (5)
  - Diplopia [Recovered/Resolved]
  - Somnolence [Recovered/Resolved]
  - Fatigue [Recovered/Resolved]
  - Disorientation [Recovered/Resolved]
  - Prescribed overdose [Unknown]
